FAERS Safety Report 9695626 (Version 1)
Quarter: 2013Q4

REPORT INFORMATION
  Report Type: Spontaneous
  Country: AU (occurrence: AU)
  Receive Date: 20131119
  Receipt Date: 20131119
  Transmission Date: 20140711
  Serious: Yes (Death, Hospitalization)
  Sender: FDA-Public Use
  Company Number: PHHY2013AU130516

PATIENT
  Age: 74 Year
  Sex: Female

DRUGS (2)
  1. METFORMIN [Suspect]
     Dosage: 2000 MG, DAY
  2. ANTIBIOTICS [Concomitant]

REACTIONS (7)
  - Death [Fatal]
  - Lactic acidosis [Unknown]
  - Loss of consciousness [Unknown]
  - Hypotension [Unknown]
  - Renal impairment [Unknown]
  - Blood creatinine increased [Unknown]
  - Septic shock [Unknown]
